FAERS Safety Report 5585117-0 (Version None)
Quarter: 2008Q1

REPORT INFORMATION
  Report Type: 
  Country: None (occurrence: None)
  Receive Date: 20080109
  Receipt Date: 20071212
  Transmission Date: 20080703
  Serious: No
  Sender: FDA-Public Use
  Company Number: US-BOEHRINGER INGELHEIM PHARMACEUTICALS, INC.-2007-BP-25159BP

PATIENT
  Sex: Male

DRUGS (8)
  1. COMBIVENT [Suspect]
     Indication: CHRONIC OBSTRUCTIVE PULMONARY DISEASE
  2. THEOPHYLLINE [Concomitant]
  3. FUROSEMIDE [Concomitant]
  4. CADUET [Concomitant]
  5. DIOVAN HCT [Concomitant]
  6. NEBULIZER [Concomitant]
  7. OTC MUSINEX [Concomitant]
  8. OTC ALEVE [Concomitant]

REACTIONS (4)
  - DIZZINESS [None]
  - HEADACHE [None]
  - VISION BLURRED [None]
  - VISUAL DISTURBANCE [None]
